FAERS Safety Report 8265896-4 (Version None)
Quarter: 2012Q2

REPORT INFORMATION
  Report Type: 
  Country: None (occurrence: None)
  Receive Date: 20120406
  Receipt Date: 20120402
  Transmission Date: 20120825
  Serious: Yes (Hospitalization)
  Sender: FDA-Public Use
  Company Number: IT-GLAXOSMITHKLINE-B0793451A

PATIENT
  Sex: Female

DRUGS (4)
  1. IRBESARTAN [Concomitant]
  2. CARDURA [Concomitant]
  3. ARIXTRA [Suspect]
     Indication: ANTICOAGULANT THERAPY
     Dosage: 7.5ML PER DAY
     Route: 065
     Dates: start: 20120315, end: 20120321
  4. LANSOPRAZOLE [Concomitant]

REACTIONS (1)
  - RECTAL HAEMORRHAGE [None]
